FAERS Safety Report 6071606-1 (Version None)
Quarter: 2009Q1

REPORT INFORMATION
  Report Type: 
  Country: None (occurrence: None)
  Receive Date: 20090210
  Receipt Date: 20090204
  Transmission Date: 20090719
  Serious: Yes (Hospitalization, Other)
  Sender: FDA-Public Use
  Company Number: US-JNJFOC-20080601055

PATIENT
  Sex: Female
  Weight: 65.77 kg

DRUGS (12)
  1. CONCERTA [Suspect]
     Indication: ATTENTION DEFICIT/HYPERACTIVITY DISORDER
     Route: 048
  2. CHOLESTOFF [Concomitant]
  3. BISOPROLOL FUMARATE [Concomitant]
     Indication: HYPERTENSION
     Route: 048
  4. ENALAPRIL [Concomitant]
     Indication: HYPERTENSION
     Route: 048
  5. KLONOPIN [Concomitant]
     Indication: ANXIETY
     Dosage: WHEN NEEDED
     Route: 048
  6. VITAMIN [Concomitant]
     Route: 065
  7. I-CAPS [Concomitant]
     Route: 065
  8. WELLBUTRIN XL [Concomitant]
     Route: 065
  9. VYVANSE [Concomitant]
  10. LOVAZA [Concomitant]
  11. FOLIC ACID [Concomitant]
  12. VITAMIN B-12 [Concomitant]

REACTIONS (1)
  - DIVERTICULUM [None]
